FAERS Safety Report 13063877 (Version 2)
Quarter: 2017Q1

REPORT INFORMATION
  Report Type: Spontaneous
  Country: US (occurrence: US)
  Receive Date: 20161227
  Receipt Date: 20170331
  Transmission Date: 20170428
  Serious: Yes (Hospitalization)
  Sender: FDA-Public Use
  Company Number: US-PFIZER INC-2016589861

PATIENT
  Age: 39 Year
  Sex: Male

DRUGS (6)
  1. EFFEXOR [Concomitant]
     Active Substance: VENLAFAXINE HYDROCHLORIDE
     Indication: NEURALGIA
     Dosage: 75 MG, 3X/DAY
     Dates: start: 1999
  2. FOLIC ACID. [Concomitant]
     Active Substance: FOLIC ACID
     Indication: FOLATE DEFICIENCY
     Dosage: 1 MG, 1X/DAY
  3. PREDNISONE. [Concomitant]
     Active Substance: PREDNISONE
     Indication: VASCULITIS
     Dosage: 5 MG, 1X/DAY
     Dates: start: 1999
  4. IMURAN [Concomitant]
     Active Substance: AZATHIOPRINE
     Indication: CEREBROVASCULAR DISORDER
     Dosage: 50 MG, UNK
     Dates: start: 1999
  5. PHENYTOIN SODIUM. [Suspect]
     Active Substance: PHENYTOIN SODIUM
     Indication: SEIZURE
     Dosage: UNK
     Dates: start: 1998
  6. DIAZEPAM. [Concomitant]
     Active Substance: DIAZEPAM
     Dosage: UNK
     Dates: start: 1999

REACTIONS (2)
  - Drug ineffective [Unknown]
  - Amnesia [Unknown]

NARRATIVE: CASE EVENT DATE: 1998
